FAERS Safety Report 5374351-0 (Version None)
Quarter: 2007Q2

REPORT INFORMATION
  Report Type: 
  Country: None (occurrence: None)
  Receive Date: 20070629
  Receipt Date: 20070620
  Transmission Date: 20071010
  Serious: No
  Sender: FDA-Public Use
  Company Number: PHNU2007DE01779

PATIENT
  Sex: Female
  Weight: 71 kg

DRUGS (1)
  1. KARIL [Suspect]
     Indication: OSTEOPOROSIS
     Dosage: 1 PUFF DAILY
     Route: 045
     Dates: start: 19950801, end: 20070101

REACTIONS (5)
  - CALCINOSIS [None]
  - METAPLASIA [None]
  - MUCOUS MEMBRANE DISORDER [None]
  - NASAL CYST [None]
  - RHINORRHOEA [None]
